FAERS Safety Report 4331360-8 (Version None)
Quarter: 2004Q1

REPORT INFORMATION
  Report Type: 
  Country: None (occurrence: None)
  Receive Date: 20040331
  Receipt Date: 20040317
  Transmission Date: 20041129
  Serious: Yes (Death, Hospitalization, Other)
  Sender: FDA-Public Use
  Company Number: SP-200001372

PATIENT
  Age: 40 Year
  Sex: Male

DRUGS (4)
  1. REMICADE [Suspect]
     Indication: CROHN'S DISEASE
     Dosage: INTRAVENOUS DRIP
     Route: 041
     Dates: start: 20000327, end: 20000327
  2. REMICADE [Suspect]
     Indication: CROHN'S DISEASE
     Dosage: INTRAVENOUS DRIP
     Route: 041
     Dates: start: 20000410
  3. REMICADE [Suspect]
     Indication: CROHN'S DISEASE
     Dosage: INTRAVENOUS DRIP
     Route: 041
     Dates: start: 20000508
  4. AZATHIOPRINE [Suspect]
     Indication: CROHN'S DISEASE
     Dates: end: 20000701

REACTIONS (21)
  - ANOREXIA [None]
  - ASCITES [None]
  - ASTHENIA [None]
  - CHOLURIA [None]
  - COMPUTERISED TOMOGRAM ABNORMAL [None]
  - CYTOLYTIC HEPATITIS [None]
  - ENCEPHALOPATHY [None]
  - GASTRIC MUCOSAL HYPERTROPHY [None]
  - GENERAL PHYSICAL HEALTH DETERIORATION [None]
  - HEPATIC FAILURE [None]
  - HEPATIC FIBROSIS [None]
  - HEPATITIS B [None]
  - HEPATITIS CHOLESTATIC [None]
  - HEPATOCELLULAR DAMAGE [None]
  - HEPATORENAL SYNDROME [None]
  - LYMPHOCYTIC INFILTRATION [None]
  - OESOPHAGEAL VARICES HAEMORRHAGE [None]
  - PERINEAL PAIN [None]
  - PRURITUS [None]
  - UPPER GASTROINTESTINAL HAEMORRHAGE [None]
  - WEIGHT DECREASED [None]
